FAERS Safety Report 23873095 (Version 1)
Quarter: 2024Q2

REPORT INFORMATION
  Report Type: Report from Study
  Country: BR (occurrence: BR)
  Receive Date: 20240520
  Receipt Date: 20240520
  Transmission Date: 20240716
  Serious: Yes (Other)
  Sender: FDA-Public Use
  Company Number: BR-TAKEDA-2024TUS048531

PATIENT
  Sex: Female
  Weight: 97 kg

DRUGS (5)
  1. VEDOLIZUMAB [Suspect]
     Active Substance: VEDOLIZUMAB
     Indication: Colitis ulcerative
     Dosage: 300 MILLIGRAM, Q4WEEKS
     Route: 042
     Dates: start: 20230428
  2. MESALAMINE [Suspect]
     Active Substance: MESALAMINE
     Indication: Colitis ulcerative
     Dosage: UNK
     Route: 054
  3. MESALAMINE [Suspect]
     Active Substance: MESALAMINE
     Dosage: 800 MILLIGRAM
     Route: 048
     Dates: start: 202402
  4. MESALAMINE [Suspect]
     Active Substance: MESALAMINE
     Dosage: 800 MILLIGRAM
     Route: 048
  5. MESALAMINE [Suspect]
     Active Substance: MESALAMINE
     Dosage: 800 MILLIGRAM
     Route: 048

REACTIONS (4)
  - Colitis ulcerative [Unknown]
  - Drug dependence [Unknown]
  - Anaemia [Unknown]
  - Product availability issue [Unknown]
